FAERS Safety Report 9945224 (Version 1)
Quarter: 2014Q1

REPORT INFORMATION
  Report Type: Report from Study
  Country: US (occurrence: US)
  Receive Date: 20140303
  Receipt Date: 20140303
  Transmission Date: 20141002
  Serious: No
  Sender: FDA-Public Use
  Company Number: US-ABBVIE-13P-163-1051672-00

PATIENT
  Age: 37 Year
  Sex: Female

DRUGS (2)
  1. HUMIRA [Suspect]
     Indication: CROHN^S DISEASE
     Dates: start: 20120823
  2. TYLENOL PM [Concomitant]
     Indication: INSOMNIA
     Dosage: AT BEDTIME

REACTIONS (3)
  - Furuncle [Recovering/Resolving]
  - Injection site pain [Recovering/Resolving]
  - Pruritus [Recovering/Resolving]
